FAERS Safety Report 5206192-9 (Version None)
Quarter: 2006Q4

REPORT INFORMATION
  Report Type: 
  Country: None (occurrence: None)
  Receive Date: 20061026
  Receipt Date: 20060922
  Transmission Date: 20070319
  Serious: No
  Sender: FDA-Public Use
  Company Number: 2006115610

PATIENT
  Age: 70 Year
  Sex: Male

DRUGS (2)
  1. LYRICA [Suspect]
     Indication: PERIPHERAL COLDNESS
     Dosage: 75 MG (75 MG, 1 IN 1 D)
     Dates: start: 20060101
  2. CRESTOR [Concomitant]

REACTIONS (2)
  - CONSTIPATION [None]
  - PERIPHERAL COLDNESS [None]
